FAERS Safety Report 5488197-6 (Version None)
Quarter: 2007Q4

REPORT INFORMATION
  Report Type: 
  Country: None (occurrence: None)
  Receive Date: 20071017
  Receipt Date: 20070712
  Transmission Date: 20080405
  Serious: Yes (Hospitalization)
  Sender: FDA-Public Use
  Company Number: GBWYE012925SEP06

PATIENT
  Sex: Male
  Weight: 12.5 kg

DRUGS (4)
  1. REFACTO [Suspect]
     Indication: HAEMORRHAGE
     Dosage: 500 IU EVERY 1 PRN
     Dates: start: 20060606, end: 20060606
  2. REFACTO [Suspect]
     Dosage: 500 IU EVERY
     Dates: start: 20060718, end: 20060101
  3. REFACTO [Suspect]
     Dosage: 1000IU DAILY FREQUENCY UNKNOWN
     Dates: start: 20060101
  4. TRANEXAMIC ACID [Concomitant]
     Indication: MOUTH HAEMORRHAGE
     Route: 048
     Dates: start: 20060606, end: 20060620

REACTIONS (2)
  - FACTOR VIII INHIBITION [None]
  - HAEMORRHAGE [None]
